FAERS Safety Report 7374494-6 (Version None)
Quarter: 2011Q1

REPORT INFORMATION
  Report Type: 
  Country: None (occurrence: None)
  Receive Date: 20110325
  Receipt Date: 20110117
  Transmission Date: 20110831
  Serious: No
  Sender: FDA-Public Use
  Company Number: US-MYLANLABS-2011S1001274

PATIENT
  Sex: Male

DRUGS (2)
  1. PERCOCET [Concomitant]
     Indication: BREAKTHROUGH PAIN
  2. FENTANYL-100 [Suspect]
     Indication: BACK PAIN
     Dosage: CHANGED Q72H.
     Route: 062

REACTIONS (5)
  - TREMOR [None]
  - BACK PAIN [None]
  - DRUG WITHDRAWAL SYNDROME [None]
  - DRUG EFFECT DECREASED [None]
  - FATIGUE [None]
